FAERS Safety Report 8009388-6 (Version None)
Quarter: 2011Q4

REPORT INFORMATION
  Report Type: 
  Country: None (occurrence: None)
  Receive Date: 20111227
  Receipt Date: 20111220
  Transmission Date: 20120403
  Serious: Yes (Death)
  Sender: FDA-Public Use
  Company Number: JP-SANOFI-AVENTIS-2011SA024972

PATIENT
  Age: 62 Year
  Sex: Male
  Weight: 51 kg

DRUGS (10)
  1. FLUOROURACIL [Suspect]
     Indication: COLON CANCER
     Dosage: DOSE REPORTED AS 416.7 MG/M2 BOLUS THEN 583.3 MG/M2 AS CONTINOUS INFUSION
     Route: 040
     Dates: start: 20110222, end: 20110223
  2. NAFAMOSTAT MESILATE [Concomitant]
     Indication: DISSEMINATED INTRAVASCULAR COAGULATION
     Route: 041
     Dates: start: 20110315, end: 20110317
  3. LEVOLEUCOVORIN CALCIUM [Concomitant]
     Indication: COLON CANCER
     Route: 041
     Dates: start: 20110222, end: 20110223
  4. DEXAMETHASONE [Concomitant]
     Indication: PREMEDICATION
     Route: 041
     Dates: start: 20110222, end: 20110222
  5. AVASTIN [Suspect]
     Indication: COLON CANCER
     Route: 041
     Dates: start: 20110222, end: 20110222
  6. CALCIUM CARBONATE [Concomitant]
     Indication: PREMEDICATION
     Route: 041
     Dates: start: 20110222, end: 20110222
  7. GRANISETRON [Concomitant]
     Indication: PREMEDICATION
     Route: 041
     Dates: start: 20110222, end: 20110222
  8. OXALIPLATIN [Suspect]
     Indication: COLON CANCER
     Route: 041
     Dates: start: 20110222, end: 20110222
  9. FLUOROURACIL [Suspect]
     Dosage: DOSE REPORTED AS 416.7 MG/M2 BOLUS THEN 583.3 MG/M2 AS CONTINOUS INFUSION
     Route: 041
     Dates: start: 20110222, end: 20110223
  10. MAGNESIUM SULFATE [Concomitant]
     Indication: PREMEDICATION
     Route: 041
     Dates: start: 20110222, end: 20110222

REACTIONS (4)
  - INFECTION [None]
  - NEUTROPHIL COUNT DECREASED [None]
  - RENAL FAILURE [None]
  - WHITE BLOOD CELL COUNT DECREASED [None]
